FAERS Safety Report 25330092 (Version 1)
Quarter: 2025Q2

REPORT INFORMATION
  Report Type: Report from Study
  Country: ZA (occurrence: ZA)
  Receive Date: 20250519
  Receipt Date: 20250519
  Transmission Date: 20250716
  Serious: Yes (Other)
  Sender: ROCHE
  Company Number: ZA-ROCHE-10000281225

PATIENT
  Sex: Male

DRUGS (1)
  1. OCREVUS [Suspect]
     Active Substance: OCRELIZUMAB
     Indication: Product used for unknown indication
     Dosage: THEREAFTER 600MG EVERY AFTER 6 MONTHS
     Route: 042
     Dates: start: 20211130

REACTIONS (7)
  - White matter lesion [Unknown]
  - Angiopathy [Unknown]
  - Spinal osteoarthritis [Unknown]
  - Cervical spinal stenosis [Unknown]
  - Intervertebral disc protrusion [Unknown]
  - Vertebral foraminal stenosis [Unknown]
  - Radiculopathy [Unknown]
